FAERS Safety Report 22232800 (Version 1)
Quarter: 2023Q2

REPORT INFORMATION
  Report Type: Spontaneous
  Country: US (occurrence: None)
  Receive Date: 20230420
  Receipt Date: 20230420
  Transmission Date: 20230722
  Serious: No
  Sender: FDA-Public Use
  Company Number: US-ROCHE-3149338

PATIENT
  Age: 67 Year
  Sex: Female
  Weight: 81.2 kg

DRUGS (25)
  1. AVASTIN [Suspect]
     Active Substance: BEVACIZUMAB
     Indication: Product used for unknown indication
     Route: 065
     Dates: start: 20180102, end: 20180608
  2. AVASTIN [Suspect]
     Active Substance: BEVACIZUMAB
     Route: 065
     Dates: start: 2016, end: 20190624
  3. AVASTIN [Suspect]
     Active Substance: BEVACIZUMAB
     Dosage: EVERY 14 DAYS
     Route: 065
     Dates: start: 201907, end: 20201217
  4. AVASTIN [Suspect]
     Active Substance: BEVACIZUMAB
     Dosage: EVERY 14 DAYS
     Route: 065
     Dates: start: 20210114, end: 20211210
  5. AVASTIN [Suspect]
     Active Substance: BEVACIZUMAB
     Dosage: EVERY 14 DAYS
     Route: 065
     Dates: start: 202201, end: 20220602
  6. LONSURF [Suspect]
     Active Substance: TIPIRACIL HYDROCHLORIDE\TRIFLURIDINE
     Indication: Colon cancer
     Dosage: CYCLE UNKNOWN (45 MG,1 IN 0.5 D)
     Route: 048
     Dates: start: 20220104, end: 20220602
  7. LONSURF [Suspect]
     Active Substance: TIPIRACIL HYDROCHLORIDE\TRIFLURIDINE
     Indication: Colorectal cancer metastatic
     Dosage: 45 MG TWICE DAILY ORALLY WITH FOOD?FROM MONDAY TO FRIDAY FOR 2 WEEKS FOLLOWED BY 2 WEEKS OFF
     Route: 048
  8. LEVOTHYROXINE SODIUM [Concomitant]
     Active Substance: LEVOTHYROXINE SODIUM
     Dosage: TAKE ONE TAB BY MOUTH ONCE DAILY IN THE MORNING BEFORE BREAKFAST EXCEPT ON SATURDAY AND SUNDAY TAKE
     Route: 048
     Dates: start: 20220420
  9. ZESTRIL [Concomitant]
     Active Substance: LISINOPRIL
     Dosage: (30 MG,1 IN 1 D)
     Route: 048
     Dates: start: 20220314
  10. PRINIVIL [Concomitant]
     Active Substance: LISINOPRIL
     Dosage: (30 MG,1 IN 1 D)
     Route: 048
     Dates: start: 20220314
  11. ATIVAN [Concomitant]
     Active Substance: LORAZEPAM
     Route: 048
  12. PRILOSEC [Concomitant]
     Active Substance: OMEPRAZOLE MAGNESIUM
     Dosage: (40 MG,1 IN 1 D)
     Route: 048
     Dates: start: 20220420
  13. SODIUM CHLORIDE [Concomitant]
     Active Substance: SODIUM CHLORIDE
     Dosage: ACCESS IMPLANTED VASCULAR ACCESS DEVICE (IVAD) AS NEEDED FOR FLUSH, BLOOD DRAW OR TREATMENT. FLUSH I
     Dates: start: 20171227
  14. DEBROX (UNITED STATES) [Concomitant]
     Dosage: USE 5 DROPS IN BOTH EARS TWICE DAILY, OTIC SOLUTION (1 IN 0.5 D)
     Dates: start: 20220314
  15. HEPARIN [Concomitant]
     Active Substance: HEPARIN SODIUM
     Dosage: 100 UNIT/ML INJECTION?ACCESS IMPLANTED VASCULAR ACCESS DEVICE (IVAD) AS NEEDED FOR FLUSH, BLOOD DRAW
     Dates: start: 20171227
  16. EMLA [Concomitant]
     Active Substance: LIDOCAINE\PRILOCAINE
     Dosage: 2.5-2.5 % CREAM- APPLY 1 APPLICATION TO AFFECTED AREA AS NEEDED. (AS REQUIRED)
     Route: 061
     Dates: start: 20210604
  17. ZOFRAN [Concomitant]
     Active Substance: ONDANSETRON HYDROCHLORIDE
     Indication: Nausea
     Dosage: 4 MG,1 IN 6 HR)
     Route: 048
     Dates: start: 20220325
  18. ZOFRAN [Concomitant]
     Active Substance: ONDANSETRON HYDROCHLORIDE
     Indication: Vomiting
  19. DESYREL [Concomitant]
     Active Substance: TRAZODONE HYDROCHLORIDE
  20. NARCAN [Concomitant]
     Active Substance: NALOXONE HYDROCHLORIDE
     Dosage: 4 MG/ACTUATION NASAL SPRAY USE 1 SPRAY IN ONE NOSTRIL AS NEEDED FOR OVERDOSE. MAY REPEAT EVERY 2 TO
     Route: 045
     Dates: start: 20220615
  21. MS CONTIN [Concomitant]
     Active Substance: MORPHINE SULFATE
     Indication: Pain
     Dosage: 15 MG EVERY 2 HOURS?15 MG 12 HR TABLET, TAKE 1 TABLET BY MOUTH 3 TIMES DAILY FOR 5 DAYS?15 MG EVERY
     Route: 048
     Dates: start: 20220615
  22. MIRALAX [Concomitant]
     Active Substance: POLYETHYLENE GLYCOL 3350
     Dosage: 17 G/DOSE POWDER DAILY BY MOUTH ONCE DAILY. DISSOLVE DOSE IN 4-8 OUNCES OF LIQUID AND TAKE AS DIRECT
     Route: 048
     Dates: start: 20220615
  23. SENOKOT [Concomitant]
     Active Substance: SENNOSIDES
     Dosage: 8.6 MG (8.6 MG,1 IN 1 D)
     Route: 048
     Dates: start: 20220615
  24. PHENERGAN [Concomitant]
     Active Substance: PROMETHAZINE HYDROCHLORIDE
     Dosage: (25 MG,1 IN 6 HR)
     Route: 048
  25. PERCOCET [Concomitant]
     Active Substance: ACETAMINOPHEN\OXYCODONE HYDROCHLORIDE
     Dosage: 5/325 1 -2 TABLETS BY MOUTH EVERY 4 HOURS AS NEEDED. (1 IN 4 HR)
     Route: 048
     Dates: start: 20220615

REACTIONS (4)
  - Fatigue [Unknown]
  - Depression [Unknown]
  - Anxiety [Unknown]
  - Disease progression [Unknown]

NARRATIVE: CASE EVENT DATE: 20220101
